FAERS Safety Report 13135722 (Version 4)
Quarter: 2018Q1

REPORT INFORMATION
  Report Type: Report from Study
  Country: KR (occurrence: KR)
  Receive Date: 20170120
  Receipt Date: 20180205
  Transmission Date: 20180508
  Serious: Yes (Hospitalization)
  Sender: FDA-Public Use
  Company Number: KR-ROCHE-1874436

PATIENT
  Age: 62 Year
  Sex: Male
  Weight: 60 kg

DRUGS (10)
  1. TACOPEN [Concomitant]
     Indication: CANCER PAIN
     Route: 065
     Dates: start: 20170117
  2. TARGIN [Concomitant]
     Active Substance: NALOXONE HYDROCHLORIDE\OXYCODONE HYDROCHLORIDE
     Indication: CANCER PAIN
     Route: 065
     Dates: start: 20170120
  3. TRAMADOL. [Concomitant]
     Active Substance: TRAMADOL
     Indication: CANCER PAIN
     Route: 065
     Dates: start: 20170114
  4. HEPATAMINE [Concomitant]
     Active Substance: ALANINE\ARGININE\CYSTEINE\GLYCINE\HISTIDINE\ISOLEUCINE\LEUCINE\LYSINE\METHIONINE\PHENYLALANINE\PROLINE\SERINE\THREONINE\TRYPTOPHAN\VALINE
     Indication: DECREASED APPETITE
     Route: 065
     Dates: start: 20170114
  5. ATEZOLIZUMAB. [Suspect]
     Active Substance: ATEZOLIZUMAB
     Indication: NON-SMALL CELL LUNG CANCER
     Dosage: MOST RECENT DOSE: 02/JAN/2017 (1200 MG).?DOSE AS PER PROTOCOL
     Route: 042
     Dates: start: 20170102
  6. MEGESTROL [Concomitant]
     Active Substance: MEGESTROL
     Indication: DECREASED APPETITE
     Route: 065
     Dates: start: 20170102
  7. DEXTROSE/SODIUM CHLORIDE [Concomitant]
     Indication: DECREASED APPETITE
     Route: 065
     Dates: start: 20170116, end: 20170120
  8. LIDOCAIN [Concomitant]
     Active Substance: LIDOCAINE
     Indication: STOMATITIS
     Route: 065
     Dates: start: 20170119
  9. MAXNOPHEN [Concomitant]
     Indication: CANCER PAIN
     Dosage: REPORTED AS: MAXNOPHEN SEMI
     Route: 065
     Dates: start: 20170114
  10. SMOFLIPID [Concomitant]
     Active Substance: FISH OIL\MEDIUM-CHAIN TRIGLYCERIDES\OLIVE OIL\SOYBEAN OIL
     Indication: DECREASED APPETITE
     Route: 065
     Dates: start: 20170116, end: 20170120

REACTIONS (2)
  - Pruritus generalised [Recovered/Resolved]
  - Infusion related reaction [Not Recovered/Not Resolved]

NARRATIVE: CASE EVENT DATE: 20170102
